FAERS Safety Report 8835173 (Version 1)
Quarter: 2012Q4

REPORT INFORMATION
  Report Type: Report from Study
  Country: CA (occurrence: CA)
  Receive Date: 20121011
  Receipt Date: 20121011
  Transmission Date: 20130627
  Serious: Yes (Other)
  Sender: FDA-Public Use
  Company Number: CA-JNJFOC-20121001966

PATIENT
  Age: 65 Year
  Sex: Female
  Weight: 72.7 kg

DRUGS (3)
  1. REMICADE [Suspect]
     Indication: RHEUMATOID ARTHRITIS
     Route: 042
     Dates: start: 20090317
  2. CLONAZEPAM [Concomitant]
     Route: 065
  3. EXTRA STRENGTH TYLENOL [Concomitant]
     Route: 065

REACTIONS (2)
  - Diarrhoea [Recovered/Resolved]
  - Dehydration [Recovered/Resolved]
